FAERS Safety Report 23396586 (Version 2)
Quarter: 2024Q1

REPORT INFORMATION
  Report Type: Spontaneous
  Country: US (occurrence: US)
  Receive Date: 20240112
  Receipt Date: 20240127
  Transmission Date: 20240409
  Serious: No
  Sender: FDA-Public Use
  Company Number: US-VIIV HEALTHCARE LIMITED-US2023AMR182240

PATIENT

DRUGS (1)
  1. DOVATO [Suspect]
     Active Substance: DOLUTEGRAVIR SODIUM\LAMIVUDINE
     Indication: HIV infection
     Dosage: UNK UNK, QD, QD (50 MG/300MG ONCE DAILY)
     Route: 048

REACTIONS (2)
  - Nausea [Recovered/Resolved]
  - Dyspraxia [Recovered/Resolved]
